FAERS Safety Report 13905553 (Version 1)
Quarter: 2017Q3

REPORT INFORMATION
  Report Type: Spontaneous
  Country: GB (occurrence: GB)
  Receive Date: 20170825
  Receipt Date: 20170825
  Transmission Date: 20171127
  Serious: Yes (Hospitalization, Disabling, Other)
  Sender: FDA-Public Use
  Company Number: GB-TEVA-798977ACC

PATIENT
  Age: 22 Year
  Sex: Female
  Weight: 58.51 kg

DRUGS (1)
  1. SERTRALINE [Suspect]
     Active Substance: SERTRALINE HYDROCHLORIDE
     Indication: DEPRESSION
     Route: 048
     Dates: start: 20160901, end: 20170331

REACTIONS (14)
  - Depression suicidal [Recovered/Resolved]
  - Obsessive thoughts [Recovered/Resolved]
  - Self-injurious ideation [Recovered/Resolved]
  - Bruxism [Recovered/Resolved]
  - Conversion disorder [Recovered/Resolved]
  - Tremor [Recovered/Resolved]
  - Intentional self-injury [Recovered/Resolved]
  - Condition aggravated [Unknown]
  - Decreased appetite [Recovered/Resolved]
  - Dizziness [Recovered/Resolved]
  - Dry mouth [Recovered/Resolved]
  - Dissociation [Recovered/Resolved]
  - Vomiting [Recovered/Resolved]
  - Disturbance in attention [Recovered/Resolved]

NARRATIVE: CASE EVENT DATE: 20160905
